FAERS Safety Report 15814497 (Version 3)
Quarter: 2019Q1

REPORT INFORMATION
  Report Type: Spontaneous
  Country: US (occurrence: US)
  Receive Date: 20190111
  Receipt Date: 20190308
  Transmission Date: 20190417
  Serious: Yes (Hospitalization, Other)
  Sender: FDA-Public Use
  Company Number: PHEH2019US001305

PATIENT
  Sex: Female

DRUGS (1)
  1. AFINITOR [Suspect]
     Active Substance: EVEROLIMUS
     Indication: BREAST CANCER FEMALE
     Dosage: 10 MG, QD
     Route: 048

REACTIONS (10)
  - Constipation [Unknown]
  - Fatigue [Unknown]
  - Decreased appetite [Recovering/Resolving]
  - Haemoglobin abnormal [Unknown]
  - Appendix disorder [Unknown]
  - Poor quality sleep [Unknown]
  - Dysgeusia [Recovering/Resolving]
  - Breast cancer female [Unknown]
  - Malignant neoplasm progression [Unknown]
  - Visual impairment [Unknown]
